FAERS Safety Report 7964216 (Version 2)
Quarter: 2013Q2

REPORT INFORMATION
  Report Type: Spontaneous
  Country: US (occurrence: US)
  Receive Date: 20110527
  Receipt Date: 20130425
  Transmission Date: 20140414
  Serious: Yes (Hospitalization, Other)
  Sender: FDA-Public Use
  Company Number: US-PFIZER INC-2011108872

PATIENT
  Age: 52 Year
  Sex: Male
  Weight: 73 kg

DRUGS (13)
  1. DILANTIN-125 [Suspect]
     Indication: CONVULSION
     Dosage: UNK
     Dates: start: 20010726, end: 20010822
  2. DILANTIN-125 [Suspect]
     Dosage: 100 MG, 3X/DAY
  3. DILANTIN-125 [Suspect]
     Dosage: 100 MG AT MORNING AND 200MG EVERY NIGHT
  4. DILANTIN [Suspect]
     Indication: CONVULSION
     Dosage: 1 G, UNK
     Route: 042
     Dates: start: 20010330
  5. DILANTIN [Suspect]
     Indication: CONVULSION
     Dosage: 50 MG, 1X/DAY
     Route: 048
  6. DILANTIN KAPSEAL [Suspect]
     Dosage: UNK
     Dates: end: 20010822
  7. HYDROCHLOROTHIAZIDE [Concomitant]
     Dosage: 12.5 MG, 1X/DAY
  8. ASPIRIN [Concomitant]
     Dosage: 81 MG, CHEW AND SWALLOW ONE DAILY WITH FOOD
     Route: 048
  9. VIOXX [Concomitant]
     Dosage: 12.5 MG, UNK
  10. ULTRAM [Concomitant]
     Indication: HEADACHE
     Dosage: 50 MG, 2 TABLETS ONCE OR TWICE DAILY
  11. BUSPIRONE [Concomitant]
     Dosage: 15 MG, 2X/DAY
  12. AMBIEN [Concomitant]
     Dosage: 10 MG, 1X/DAY AT NIGHT
  13. DOCUSATE [Concomitant]
     Dosage: UNK

REACTIONS (1)
  - Stevens-Johnson syndrome [Unknown]
